FAERS Safety Report 18721169 (Version 1)
Quarter: 2021Q1

REPORT INFORMATION
  Report Type: Report from Study
  Country: HU (occurrence: HU)
  Receive Date: 20210109
  Receipt Date: 20210109
  Transmission Date: 20210419
  Serious: Yes (Death)
  Sender: FDA-Public Use
  Company Number: NVSC2021HU003914

PATIENT
  Age: 58 Year
  Sex: Female

DRUGS (1)
  1. ZARZIO [Suspect]
     Active Substance: FILGRASTIM
     Indication: FEBRILE NEUTROPENIA
     Dosage: UNK UNK, QD (1X DAILY)
     Route: 058
     Dates: start: 20201124

REACTIONS (1)
  - Death [Fatal]

NARRATIVE: CASE EVENT DATE: 202012
